FAERS Safety Report 10034869 (Version 1)
Quarter: 2014Q1

REPORT INFORMATION
  Report Type: Spontaneous
  Country: IT (occurrence: IT)
  Receive Date: 20140325
  Receipt Date: 20140325
  Transmission Date: 20141002
  Serious: Yes (Hospitalization)
  Sender: FDA-Public Use
  Company Number: IT-BAYER-2014-041362

PATIENT
  Age: 78 Year
  Sex: Female

DRUGS (8)
  1. CARDIOASPIRIN [Suspect]
     Indication: THROMBOSIS PROPHYLAXIS
     Dosage: DAILY DOSE 1 DF
     Route: 048
     Dates: start: 20130101, end: 20131207
  2. ARIXTRA [Suspect]
     Indication: THROMBOSIS PROPHYLAXIS
     Dosage: DAILY DOSE 1 DF
     Route: 058
     Dates: start: 20130101, end: 20131207
  3. ROCALTROL [Concomitant]
     Dosage: UNK
     Route: 048
  4. TRIATEC [Concomitant]
     Dosage: UNK
     Route: 048
  5. BECOZYM [Concomitant]
     Dosage: UNK
     Route: 048
  6. EUTIROX [Concomitant]
     Dosage: UNK
     Route: 048
  7. ZOLOFT [Concomitant]
     Dosage: UNK
     Route: 048
  8. PEPTAZOL [Concomitant]
     Dosage: UNK
     Route: 048

REACTIONS (4)
  - Gastrointestinal haemorrhage [Unknown]
  - Rectal haemorrhage [Unknown]
  - Hypotension [Unknown]
  - Pallor [Unknown]
